FAERS Safety Report 15599377 (Version 1)
Quarter: 2018Q4

REPORT INFORMATION
  Report Type: Spontaneous
  Country: BR (occurrence: BR)
  Receive Date: 20181108
  Receipt Date: 20181108
  Transmission Date: 20190205
  Serious: Yes (Other)
  Sender: FDA-Public Use
  Company Number: BR-PFIZER INC-2018441840

PATIENT
  Sex: Female

DRUGS (2)
  1. ANAFRANIL [Concomitant]
     Active Substance: CLOMIPRAMINE HYDROCHLORIDE
     Dosage: UNK
  2. LORAX [Suspect]
     Active Substance: LORAZEPAM
     Dosage: UNK

REACTIONS (3)
  - Leiomyoma [Unknown]
  - Intestinal obstruction [Unknown]
  - Abdominal adhesions [Unknown]

NARRATIVE: CASE EVENT DATE: 201808
